FAERS Safety Report 4506204-1 (Version None)
Quarter: 2004Q4

REPORT INFORMATION
  Report Type: 
  Country: None (occurrence: None)
  Receive Date: 20041025
  Receipt Date: 20031010
  Transmission Date: 20050328
  Serious: Yes (Other)
  Sender: FDA-Public Use
  Company Number: US-JNJFOC-20031002552

PATIENT
  Age: 57 Year
  Sex: Male
  Weight: 84.8226 kg

DRUGS (1)
  1. REMICADE [Suspect]
     Indication: RHEUMATOID ARTHRITIS
     Dosage: 300 MG 1 IN 1 DAY INTRAVENOUS
     Route: 042
     Dates: start: 20031009

REACTIONS (2)
  - BLOOD PRESSURE INCREASED [None]
  - DYSPNOEA [None]
